FAERS Safety Report 5027544-6 (Version None)
Quarter: 2006Q2

REPORT INFORMATION
  Report Type: 
  Country: None (occurrence: None)
  Receive Date: 20060616
  Receipt Date: 20060606
  Transmission Date: 20061013
  Serious: Yes (Other)
  Sender: FDA-Public Use
  Company Number: PHBS2006JP08573

PATIENT
  Age: 8 Year
  Sex: Male

DRUGS (5)
  1. MUCOSAL [Concomitant]
     Dosage: 15 MG, UNK
  2. CALCIUM LACTATE [Concomitant]
     Dosage: 1 G, UNK
  3. ALFAROL [Concomitant]
     Dosage: 2 ML, UNK
  4. GASTER [Concomitant]
     Dosage: 20 MG, UNK
  5. LIORESAL [Suspect]
     Dosage: 3 DF/DAY
     Route: 048

REACTIONS (1)
  - MUSCLE ATROPHY [None]
